FAERS Safety Report 20336220 (Version 1)
Quarter: 2022Q1

REPORT INFORMATION
  Report Type: Spontaneous
  Country: US (occurrence: None)
  Receive Date: 20220114
  Receipt Date: 20220114
  Transmission Date: 20220423
  Serious: No
  Sender: FDA-Public Use
  Company Number: None

PATIENT
  Age: 62 Year
  Sex: Female
  Weight: 63 kg

DRUGS (7)
  1. BAMLANIVIMAB [Suspect]
     Active Substance: BAMLANIVIMAB
     Indication: COVID-19
     Route: 048
     Dates: start: 20220112, end: 20220112
  2. TRELEGY ELLIPTA [Concomitant]
     Active Substance: FLUTICASONE FUROATE\UMECLIDINIUM BROMIDE\VILANTEROL TRIFENATATE
  3. Eye pressure meds [Concomitant]
  4. LEVOTHYROXINE [Concomitant]
     Active Substance: LEVOTHYROXINE
  5. CHLORTHALIDONE [Concomitant]
     Active Substance: CHLORTHALIDONE
  6. DESVENLAFAXINE [Concomitant]
     Active Substance: DESVENLAFAXINE
  7. ASPIRIN [Concomitant]
     Active Substance: ASPIRIN

REACTIONS (2)
  - Oropharyngeal discomfort [None]
  - Sinus disorder [None]

NARRATIVE: CASE EVENT DATE: 20220112
